FAERS Safety Report 4787386-3 (Version None)
Quarter: 2005Q4

REPORT INFORMATION
  Report Type: 
  Country: None (occurrence: None)
  Receive Date: 20051003
  Receipt Date: 20050919
  Transmission Date: 20060501
  Serious: Yes (Other)
  Sender: FDA-Public Use
  Company Number: S05-USA-03755-01

PATIENT
  Age: 43 Year
  Sex: Male

DRUGS (15)
  1. CELEXA [Suspect]
     Indication: ANXIETY
     Dosage: 20 MG QD, PO
     Route: 048
     Dates: start: 20020528, end: 20021007
  2. CELEXA [Suspect]
     Indication: DEPRESSION
     Dosage: 20 MG QD, PO
     Route: 048
     Dates: start: 20020528, end: 20021007
  3. CELEXA [Suspect]
     Indication: ANXIETY
     Dosage: 10 MG QD, PO
     Route: 048
     Dates: start: 20021017, end: 20021119
  4. CELEXA [Suspect]
     Indication: DEPRESSION
     Dosage: 10 MG QD, PO
     Route: 048
     Dates: start: 20021017, end: 20021119
  5. CELEXA [Suspect]
     Indication: ANXIETY
     Dosage: 20 MG BID, PO
     Route: 048
     Dates: start: 20021008, end: 20021016
  6. CELEXA [Suspect]
     Indication: DEPRESSION
     Dosage: 20 MG BID, PO
     Route: 048
     Dates: start: 20021008, end: 20021016
  7. CELEXA [Suspect]
     Indication: ANXIETY
     Dosage: 20 MG BID, PO
     Route: 048
     Dates: start: 20021120, end: 20031001
  8. CELEXA [Suspect]
     Indication: DEPRESSION
     Dosage: 20 MG BID, PO
     Route: 048
     Dates: start: 20021120, end: 20031001
  9. STELAZINE (TRIFLUOPERAZNE HYDROCHLORIDE) [Concomitant]
     Indication: FIBROMYALGIA
     Dosage: 5 MG QD
     Dates: start: 20011011
  10. CELEBREX [Concomitant]
  11. PREVACID [Concomitant]
  12. XANAX [Concomitant]
  13. KLONOPIN [Concomitant]
  14. LEXAPRO [Concomitant]
  15. REMERON [Concomitant]

REACTIONS (24)
  - ABDOMINAL DISTENSION [None]
  - AGITATION [None]
  - ANGER [None]
  - ANXIETY [None]
  - BIPOLAR DISORDER [None]
  - CONDITION AGGRAVATED [None]
  - CONSTIPATION [None]
  - DEPRESSION [None]
  - DISTURBANCE IN ATTENTION [None]
  - DISTURBANCE IN SOCIAL BEHAVIOUR [None]
  - ERECTILE DYSFUNCTION [None]
  - FIBROMYALGIA [None]
  - GASTROINTESTINAL DISORDER [None]
  - HYPERHIDROSIS [None]
  - IRRITABILITY [None]
  - LIBIDO DISORDER [None]
  - MANIA [None]
  - MEMORY IMPAIRMENT [None]
  - MYALGIA [None]
  - MYOFASCIAL PAIN SYNDROME [None]
  - OEDEMA PERIPHERAL [None]
  - PARANOIA [None]
  - PERFORMANCE STATUS DECREASED [None]
  - THINKING ABNORMAL [None]
